FAERS Safety Report 12932276 (Version 2)
Quarter: 2016Q4

REPORT INFORMATION
  Report Type: Spontaneous
  Country: GB (occurrence: GB)
  Receive Date: 20161111
  Receipt Date: 20161125
  Transmission Date: 20170207
  Serious: Yes (Hospitalization, Other)
  Sender: FDA-Public Use
  Company Number: GB-GLENMARK PHARMACEUTICALS INC, USA.-2016GMK024840

PATIENT
  Age: 19 Year
  Sex: Female

DRUGS (6)
  1. COCAINE [Concomitant]
     Active Substance: COCAINE
     Indication: PRODUCT USED FOR UNKNOWN INDICATION
     Dosage: INFREQUENT COCAINE USE
     Route: 065
  2. ECSTASY [Concomitant]
     Active Substance: METHYLENEDIOXYMETHAMPHETAMINE
     Indication: PRODUCT USED FOR UNKNOWN INDICATION
     Dosage: ECSTASY TABLETS CONTAINS: 3,4- METHYLENEDIOXYMETHAMPHETAMINE
     Route: 065
  3. FLUOXETINE [Suspect]
     Active Substance: FLUOXETINE HYDROCHLORIDE
     Indication: DEPRESSION
     Dosage: UNK
     Route: 065
  4. METHYLPHENIDATE HYDROCHLORIDE. [Concomitant]
     Active Substance: METHYLPHENIDATE HYDROCHLORIDE
     Indication: PRODUCT USED FOR UNKNOWN INDICATION
     Dosage: EVERY FEW WEEKS FOR THE LAST THREE MONTHS
     Route: 065
  5. CITALOPRAM HYDROBROMIDE. [Suspect]
     Active Substance: CITALOPRAM HYDROBROMIDE
     Indication: DEPRESSION
     Dosage: UNK
     Route: 065
  6. CANNABIS [Suspect]
     Active Substance: CANNABIS SATIVA SUBSP. INDICA TOP
     Indication: PRODUCT USED FOR UNKNOWN INDICATION
     Dosage: A SACHET OF CANNABIS TEA (1.5 G) WAS SMOKED
     Route: 065

REACTIONS (5)
  - Toxicity to various agents [Recovered/Resolved]
  - Tonic convulsion [Recovered/Resolved]
  - Coma scale abnormal [Recovered/Resolved]
  - Respiratory acidosis [Recovered/Resolved]
  - Hallucination, visual [Recovered/Resolved]
